FAERS Safety Report 14139701 (Version 1)
Quarter: 2017Q4

REPORT INFORMATION
  Report Type: Report from Study
  Country: DE (occurrence: DE)
  Receive Date: 20171029
  Receipt Date: 20171029
  Transmission Date: 20180321
  Serious: Yes (Death, Hospitalization, Other)
  Sender: FDA-Public Use
  Company Number: DE-BRISTOL-MYERS SQUIBB COMPANY-BMS-2017-026958

PATIENT
  Age: 81 Year
  Sex: Male

DRUGS (1)
  1. APIXABAN [Suspect]
     Active Substance: APIXABAN
     Indication: PULMONARY EMBOLISM
     Dosage: 5 MG, BID
     Route: 065
     Dates: start: 20161201, end: 20170307

REACTIONS (7)
  - Malignant neoplasm progression [Fatal]
  - General physical health deterioration [Fatal]
  - Gastrointestinal haemorrhage [Not Recovered/Not Resolved]
  - Pneumonitis [Fatal]
  - Transfusion [Not Recovered/Not Resolved]
  - Prescribed underdose [Unknown]
  - Haemodynamic instability [Not Recovered/Not Resolved]

NARRATIVE: CASE EVENT DATE: 20170307
